FAERS Safety Report 10797272 (Version 1)
Quarter: 2015Q1

REPORT INFORMATION
  Report Type: Report from Study
  Country: FR (occurrence: FR)
  Receive Date: 20150216
  Receipt Date: 20150216
  Transmission Date: 20150721
  Serious: Yes (Other)
  Sender: FDA-Public Use
  Company Number: FR-ASTELLAS-2015US003134

PATIENT
  Age: 5 Year
  Sex: Male
  Weight: 16 kg

DRUGS (15)
  1. TACROLIMUS. [Suspect]
     Active Substance: TACROLIMUS
     Indication: PROPHYLAXIS AGAINST TRANSPLANT REJECTION
     Dosage: TWICE DAILY (4.4 MG/DAY), DURING MEAL WITH WATER
     Route: 065
     Dates: start: 201403
  2. TACROLIMUS. [Suspect]
     Active Substance: TACROLIMUS
     Dosage: 4.2 MG, TWICE DAILY
     Route: 065
     Dates: end: 20141219
  3. MMF SANDOZ [Concomitant]
     Route: 065
     Dates: start: 20140401, end: 20140513
  4. ADALAT [Concomitant]
     Active Substance: NIFEDIPINE
     Indication: SUPPORTIVE CARE
     Route: 048
     Dates: start: 20140128
  5. TACROLIMUS. [Suspect]
     Active Substance: TACROLIMUS
     Dosage: UNK UNK, UNKNOWN FREQ (ADJUSTMENT TO REACH TARGET LEVEL)
     Route: 065
     Dates: start: 20140527
  6. MMF SANDOZ [Concomitant]
     Route: 065
     Dates: start: 20140513
  7. TACROLIMUS. [Suspect]
     Active Substance: TACROLIMUS
     Dosage: 5.6 MG, ONCE DAILY  (ADJUSTMENT TO REACH TARGET LEVEL)
     Route: 065
     Dates: start: 20140805
  8. CELLCEPT [Concomitant]
     Active Substance: MYCOPHENOLATE MOFETIL\MYCOPHENOLATE MOFETIL HYDROCHLORIDE
     Indication: PROPHYLAXIS
     Route: 065
     Dates: start: 20140401
  9. MMF SANDOZ [Concomitant]
     Indication: PROPHYLAXIS
     Route: 048
     Dates: start: 20131220
  10. MMF SANDOZ [Concomitant]
     Route: 065
     Dates: end: 20140401
  11. TACROLIMUS. [Suspect]
     Active Substance: TACROLIMUS
     Dosage: 4.8 MG, ONCE DAILY  (ADJUSTMENT TO REACH TARGET LEVEL)
     Route: 065
     Dates: start: 20140605
  12. TACROLIMUS. [Suspect]
     Active Substance: TACROLIMUS
     Dosage: 5.2 MG, ONCE DAILY  (ADJUSTMENT TO REACH TARGET LEVEL)
     Route: 065
     Dates: start: 20140709
  13. BACTRIM [Concomitant]
     Active Substance: SULFAMETHOXAZOLE\TRIMETHOPRIM
     Indication: PROPHYLAXIS
     Route: 048
     Dates: start: 20131226
  14. CELLCEPT [Concomitant]
     Active Substance: MYCOPHENOLATE MOFETIL\MYCOPHENOLATE MOFETIL HYDROCHLORIDE
     Route: 065
     Dates: start: 20140513
  15. CELLCEPT [Concomitant]
     Active Substance: MYCOPHENOLATE MOFETIL\MYCOPHENOLATE MOFETIL HYDROCHLORIDE
     Route: 065

REACTIONS (5)
  - Malabsorption [Unknown]
  - Weight decreased [Unknown]
  - Nephropathy toxic [Unknown]
  - Diarrhoea [Recovered/Resolved]
  - Acidosis [Recovered/Resolved]

NARRATIVE: CASE EVENT DATE: 201408
